FAERS Safety Report 5809681-9 (Version None)
Quarter: 2008Q3

REPORT INFORMATION
  Report Type: 
  Country: None (occurrence: None)
  Receive Date: 20080711
  Receipt Date: 20080711
  Transmission Date: 20090109
  Serious: Yes (Hospitalization)
  Sender: FDA-Public Use
  Company Number: None

PATIENT
  Sex: Female
  Weight: 64.7 kg

DRUGS (5)
  1. DOXORUBICIN HCL [Suspect]
     Dosage: 100 MG
  2. PEG-L-ASPARAGINASE (K-H) [Suspect]
     Dosage: 12750 UNIT
  3. PREDNISONE TAB [Suspect]
     Dosage: 1610 MG
  4. VINCRISTINE SULFATE [Suspect]
     Dosage: 7.5 MG
  5. CYTARABINE [Suspect]
     Dosage: 70 MG

REACTIONS (19)
  - ALANINE AMINOTRANSFERASE INCREASED [None]
  - ASPARTATE AMINOTRANSFERASE INCREASED [None]
  - BLOOD ALBUMIN DECREASED [None]
  - BLOOD BILIRUBIN INCREASED [None]
  - BLOOD CULTURE POSITIVE [None]
  - BLOOD POTASSIUM INCREASED [None]
  - BRONCHIAL HAEMORRHAGE [None]
  - BRONCHOSCOPY ABNORMAL [None]
  - CANDIDIASIS [None]
  - CARDIAC ARREST [None]
  - ESCHERICHIA INFECTION [None]
  - HYPOVENTILATION [None]
  - LUNG CONSOLIDATION [None]
  - LUNG INFILTRATION [None]
  - NEUTROPENIA [None]
  - PLEURAL EFFUSION [None]
  - PROTEIN TOTAL DECREASED [None]
  - PYREXIA [None]
  - RESPIRATORY DISORDER [None]
